FAERS Safety Report 7177972-8 (Version None)
Quarter: 2010Q4

REPORT INFORMATION
  Report Type: 
  Country: None (occurrence: None)
  Receive Date: 20101220
  Receipt Date: 20101210
  Transmission Date: 20110411
  Serious: Yes (Other)
  Sender: FDA-Public Use
  Company Number: US-ACTELION-A-US2010-40094

PATIENT

DRUGS (1)
  1. BOSENTAN TABLET UNKNOWN US MG [Suspect]
     Indication: PULMONARY ARTERIAL HYPERTENSION
     Dosage: UNK
     Route: 048
     Dates: start: 20100922, end: 20100930

REACTIONS (7)
  - ARRHYTHMIA [None]
  - CHEST PAIN [None]
  - CONDITION AGGRAVATED [None]
  - PALPITATIONS [None]
  - PERIPHERAL COLDNESS [None]
  - PSYCHOMOTOR HYPERACTIVITY [None]
  - RAYNAUD'S PHENOMENON [None]
